FAERS Safety Report 16997655 (Version 1)
Quarter: 2019Q4

REPORT INFORMATION
  Report Type: Spontaneous
  Country: US (occurrence: US)
  Receive Date: 20190925
  Receipt Date: 20190925
  Transmission Date: 20200122
  Serious: Yes (Hospitalization)
  Sender: FDA-Public Use
  Company Number: None

PATIENT
  Age: 59 Year
  Sex: Female

DRUGS (3)
  1. CEFACLOR. [Concomitant]
     Active Substance: CEFACLOR
  2. HUMIRA [Suspect]
     Active Substance: ADALIMUMAB
     Indication: PSORIASIS
     Route: 058
     Dates: start: 20160206
  3. IRBESAR/HCTZ [Concomitant]

REACTIONS (2)
  - Kidney infection [None]
  - Therapy cessation [None]

NARRATIVE: CASE EVENT DATE: 20190812
